FAERS Safety Report 24935822 (Version 1)
Quarter: 2025Q1

REPORT INFORMATION
  Report Type: Report from Study
  Country: US (occurrence: US)
  Receive Date: 20250206
  Receipt Date: 20250206
  Transmission Date: 20250409
  Serious: Yes (Hospitalization, Other)
  Sender: EXELIXIS
  Company Number: US-EXELIXIS-CABO-24081182

PATIENT
  Sex: Male

DRUGS (5)
  1. CABOMETYX [Suspect]
     Active Substance: CABOZANTINIB S-MALATE
     Indication: Renal cancer stage IV
     Dosage: 20 MG, QD
     Route: 048
     Dates: start: 2024, end: 20240302
  2. CABOMETYX [Suspect]
     Active Substance: CABOZANTINIB S-MALATE
     Indication: Metastases to central nervous system
     Dosage: 20 MG, QD
     Route: 048
  3. CABOMETYX [Suspect]
     Active Substance: CABOZANTINIB S-MALATE
     Dosage: 20 MG, QD
     Route: 048
  4. OPDIVO [Suspect]
     Active Substance: NIVOLUMAB
     Indication: Renal cancer stage IV
  5. OPDIVO [Suspect]
     Active Substance: NIVOLUMAB
     Indication: Metastases to central nervous system

REACTIONS (10)
  - Dehydration [Unknown]
  - Blood sodium abnormal [Recovered/Resolved]
  - Malignant mesenteric neoplasm [Unknown]
  - Infusion [Unknown]
  - Malignant neoplasm progression [Unknown]
  - Gait inability [Unknown]
  - Respiratory tract irritation [Unknown]
  - Neoplasm prostate [Unknown]
  - Product storage error [Unknown]
  - Product size issue [Unknown]

NARRATIVE: CASE EVENT DATE: 20240101
